FAERS Safety Report 14961057 (Version 1)
Quarter: 2018Q2

REPORT INFORMATION
  Report Type: Spontaneous
  Country: US (occurrence: US)
  Receive Date: 20180531
  Receipt Date: 20180531
  Transmission Date: 20180711
  Serious: No
  Sender: FDA-Public Use
  Company Number: US-ASTRAZENECA-2018SE68332

PATIENT
  Age: 29145 Day
  Sex: Female
  Weight: 64 kg

DRUGS (17)
  1. DESYREL [Concomitant]
     Active Substance: TRAZODONE HYDROCHLORIDE
     Route: 048
  2. TOPROL XL [Suspect]
     Active Substance: METOPROLOL SUCCINATE
     Route: 048
  3. CENTRUM [Concomitant]
     Active Substance: VITAMINS
     Route: 048
  4. PLAVIX [Concomitant]
     Active Substance: CLOPIDOGREL BISULFATE
     Route: 048
  5. MAGNESIUM OXIDE. [Concomitant]
     Active Substance: MAGNESIUM OXIDE
     Route: 048
  6. XARELTO [Concomitant]
     Active Substance: RIVAROXABAN
     Route: 048
  7. PRILOSEC [Suspect]
     Active Substance: OMEPRAZOLE MAGNESIUM
     Route: 048
  8. LASIX [Concomitant]
     Active Substance: FUROSEMIDE
     Route: 048
  9. PRAVACHOL [Concomitant]
     Active Substance: PRAVASTATIN SODIUM
     Route: 048
  10. TYLENOL [Concomitant]
     Active Substance: ACETAMINOPHEN
     Route: 048
  11. CALTRATE [Concomitant]
     Active Substance: CALCIUM CARBONATE
     Dosage: 600- 400 UNITS
     Route: 048
  12. NEURONTIN [Concomitant]
     Active Substance: GABAPENTIN
     Route: 048
  13. NITROSTAT [Concomitant]
     Active Substance: NITROGLYCERIN
     Indication: CHEST PAIN
     Dosage: 0.4MG AS REQUIRED
     Route: 060
  14. DIGOXIN. [Concomitant]
     Active Substance: DIGOXIN
     Route: 048
  15. VITAMIN B12 [Concomitant]
     Active Substance: CYANOCOBALAMIN
     Route: 060
  16. BYDUREON BCISE [Suspect]
     Active Substance: EXENATIDE
     Indication: TYPE 2 DIABETES MELLITUS
     Route: 058
     Dates: start: 20180506
  17. ASPIRIN. [Concomitant]
     Active Substance: ASPIRIN
     Route: 048

REACTIONS (8)
  - Product quality issue [Unknown]
  - Injection site haemorrhage [Recovered/Resolved]
  - Intentional product misuse [Unknown]
  - Injection site bruising [Recovered/Resolved]
  - Malaise [Unknown]
  - Injection site injury [Not Recovered/Not Resolved]
  - Injection site pain [Recovered/Resolved]
  - Weight decreased [Unknown]

NARRATIVE: CASE EVENT DATE: 20180506
